FAERS Safety Report 4530929-5 (Version None)
Quarter: 2004Q4

REPORT INFORMATION
  Report Type: 
  Country: None (occurrence: None)
  Receive Date: 20041213
  Receipt Date: 20041201
  Transmission Date: 20050328
  Serious: Yes (Hospitalization)
  Sender: FDA-Public Use
  Company Number: 200410390BBE

PATIENT
  Age: 47 Year
  Sex: Female
  Weight: 56.6996 kg

DRUGS (2)
  1. GAMIMUNE N 10% [Suspect]
     Indication: IMMUNODEFICIENCY COMMON VARIABLE
     Dosage: 30 G, UNK, INTRAVENOUS
     Route: 042
     Dates: start: 20030901
  2. STEROIDS [Concomitant]

REACTIONS (2)
  - ADRENAL DISORDER [None]
  - HYPERSENSITIVITY [None]
